FAERS Safety Report 5052117-9 (Version None)
Quarter: 2006Q3

REPORT INFORMATION
  Report Type: 
  Country: None (occurrence: None)
  Receive Date: 20060711
  Receipt Date: 20060620
  Transmission Date: 20061208
  Serious: No
  Sender: FDA-Public Use
  Company Number: AU200606002095

PATIENT
  Age: 44 Year
  Sex: Female

DRUGS (3)
  1. FLUOXETINE [Suspect]
     Indication: DEPRESSION
     Dosage: 40 MG DAILY (1/D)
     Dates: start: 20060413, end: 20060501
  2. PONSTAN/CAN/(MEFENAMIC ACID) [Concomitant]
  3. LEVLEN (ETHINYLESTRADIOL, LEVONORGESTREL) [Concomitant]

REACTIONS (13)
  - ASTHENIA [None]
  - BEDRIDDEN [None]
  - FATIGUE [None]
  - GENERAL PHYSICAL HEALTH DETERIORATION [None]
  - HOT FLUSH [None]
  - HYPERHIDROSIS [None]
  - HYPOVENTILATION [None]
  - MUSCLE TWITCHING [None]
  - ORAL INTAKE REDUCED [None]
  - PANIC ATTACK [None]
  - PARAESTHESIA [None]
  - SOMNOLENCE [None]
  - TREMOR [None]
